FAERS Safety Report 17091369 (Version 1)
Quarter: 2019Q4

REPORT INFORMATION
  Report Type: Spontaneous
  Country: US (occurrence: US)
  Receive Date: 20191129
  Receipt Date: 20191129
  Transmission Date: 20200122
  Serious: No
  Sender: FDA-Public Use
  Company Number: US-STRIDES ARCOLAB LIMITED-2019SP010092

PATIENT
  Age: 17 Year
  Sex: Male

DRUGS (4)
  1. TRIAMCINOLONE ACETONIDE. [Suspect]
     Active Substance: TRIAMCINOLONE ACETONIDE
     Indication: ERYTHEMA DYSCHROMICUM PERSTANS
     Dosage: UNK
     Route: 061
  2. DAPSONE. [Suspect]
     Active Substance: DAPSONE
     Indication: ERYTHEMA DYSCHROMICUM PERSTANS
     Dosage: UNK
     Route: 061
  3. CLOBETASOL [Suspect]
     Active Substance: CLOBETASOL
     Indication: ERYTHEMA DYSCHROMICUM PERSTANS
     Dosage: UNK
     Route: 061
  4. TACROLIMUS. [Suspect]
     Active Substance: TACROLIMUS
     Indication: ERYTHEMA DYSCHROMICUM PERSTANS
     Dosage: UNK
     Route: 061

REACTIONS (1)
  - Drug ineffective [Unknown]
